FAERS Safety Report 8479699-9 (Version None)
Quarter: 2012Q2

REPORT INFORMATION
  Report Type: 
  Country: None (occurrence: None)
  Receive Date: 20120629
  Receipt Date: 20120619
  Transmission Date: 20120825
  Serious: Yes (Hospitalization, Other)
  Sender: FDA-Public Use
  Company Number: US-ABBOTT-12P-163-0947599-00

PATIENT
  Sex: Female
  Weight: 72.64 kg

DRUGS (5)
  1. SLEEPING PILL [Concomitant]
     Indication: PRODUCT USED FOR UNKNOWN INDICATION
  2. HUMIRA [Suspect]
     Indication: COLITIS ULCERATIVE
     Dates: start: 20110501, end: 20120502
  3. NEURONTIN [Concomitant]
     Indication: PRODUCT USED FOR UNKNOWN INDICATION
  4. OXYCODONE HCL [Concomitant]
     Indication: PRODUCT USED FOR UNKNOWN INDICATION
  5. COUMADIN [Concomitant]
     Indication: PRODUCT USED FOR UNKNOWN INDICATION

REACTIONS (11)
  - NAUSEA [None]
  - IMMUNE SYSTEM DISORDER [None]
  - FALL [None]
  - VOMITING [None]
  - COUGH [None]
  - CENTRAL NERVOUS SYSTEM LESION [None]
  - OFF LABEL USE [None]
  - LISTERIOSIS [None]
  - CONFUSIONAL STATE [None]
  - PYREXIA [None]
  - CEREBROVASCULAR ACCIDENT [None]
